FAERS Safety Report 6472590-9 (Version None)
Quarter: 2009Q4

REPORT INFORMATION
  Report Type: 
  Country: None (occurrence: None)
  Receive Date: 20091130
  Receipt Date: 20091109
  Transmission Date: 20100525
  Serious: Yes (Other)
  Sender: FDA-Public Use
  Company Number: VAL_00332_2009

PATIENT
  Age: 32 Year
  Sex: Female

DRUGS (3)
  1. CALCITRIOL [Suspect]
     Indication: HYPERPARATHYROIDISM PRIMARY
     Dosage: (0.25 ?G BID ORAL)
     Route: 048
  2. CHOLECALCIFEROL [Concomitant]
  3. CALCIUM CARBONATE [Concomitant]

REACTIONS (5)
  - BRONCHOPNEUMONIA [None]
  - HUNGRY BONE SYNDROME [None]
  - HYPOCALCAEMIA [None]
  - PARATHYROIDECTOMY [None]
  - RESPIRATORY FAILURE [None]
